FAERS Safety Report 19005152 (Version 4)
Quarter: 2021Q2

REPORT INFORMATION
  Report Type: Report from Study
  Country: BE (occurrence: BE)
  Receive Date: 20210312
  Receipt Date: 20210406
  Transmission Date: 20210717
  Serious: Yes (Death, Hospitalization)
  Sender: FDA-Public Use
  Company Number: BE-EXELIXIS-XL18421037844

PATIENT
  Age: 82 Year
  Sex: Male
  Weight: 74.3 kg

DRUGS (1)
  1. CABOZANTINIB [Suspect]
     Active Substance: CABOZANTINIB
     Indication: RENAL CELL CARCINOMA
     Dosage: 40 MG, QD
     Route: 048
     Dates: start: 20210208, end: 20210211

REACTIONS (5)
  - Dyspnoea [Recovered/Resolved]
  - Dysphonia [Unknown]
  - Spinal cord compression [Recovered/Resolved]
  - General physical health deterioration [Fatal]
  - Death [Fatal]

NARRATIVE: CASE EVENT DATE: 20210208
